FAERS Safety Report 25464429 (Version 5)
Quarter: 2025Q3

REPORT INFORMATION
  Report Type: Spontaneous
  Country: CO (occurrence: CO)
  Receive Date: 20250621
  Receipt Date: 20250927
  Transmission Date: 20251021
  Serious: Yes (Death, Hospitalization, Other)
  Sender: CELLTRION
  Company Number: CO-CELLTRION INC.-2025CO018863

PATIENT

DRUGS (1)
  1. TRUXIMA [Suspect]
     Active Substance: RITUXIMAB-ABBS
     Indication: Rheumatoid arthritis
     Route: 042
     Dates: start: 20250610

REACTIONS (4)
  - Rheumatoid arthritis [Fatal]
  - Knee operation [Not Recovered/Not Resolved]
  - Therapy interrupted [Not Recovered/Not Resolved]
  - Product availability issue [Not Recovered/Not Resolved]

NARRATIVE: CASE EVENT DATE: 20250610
